FAERS Safety Report 4706076-6 (Version None)
Quarter: 2005Q2

REPORT INFORMATION
  Report Type: 
  Country: None (occurrence: None)
  Receive Date: 20050627
  Receipt Date: 20040917
  Transmission Date: 20051028
  Serious: Yes (Hospitalization)
  Sender: FDA-Public Use
  Company Number: US-JNJFOC-20040808221

PATIENT
  Age: 75 Year
  Sex: Female

DRUGS (7)
  1. FENTANYL [Suspect]
     Indication: PAIN
     Dosage: 75 UG/HR, TRANSDERMAL
     Route: 062
     Dates: start: 20040701, end: 20040801
  2. TOPROL XL (METOPROLOL SUCCINATE) TABLETS [Concomitant]
  3. LANOXIN [Concomitant]
  4. DIOVAN [Concomitant]
  5. LEXIPRO (SSRI) TABLETS [Concomitant]
  6. PRAVACHOL [Concomitant]
  7. COUMADIN [Concomitant]

REACTIONS (3)
  - DRUG WITHDRAWAL SYNDROME [None]
  - FEELING ABNORMAL [None]
  - HALLUCINATION [None]
